FAERS Safety Report 9171051 (Version 2)
Quarter: 2013Q2

REPORT INFORMATION
  Report Type: Report from Study
  Country: US (occurrence: US)
  Receive Date: 20130319
  Receipt Date: 20130514
  Transmission Date: 20140414
  Serious: Yes (Other)
  Sender: FDA-Public Use
  Company Number: US-BRISTOL-MYERS SQUIBB COMPANY-17477043

PATIENT
  Age: 32 Year
  Sex: Male

DRUGS (3)
  1. NIVOLUMAB [Suspect]
     Indication: MALIGNANT MELANOMA
     Dosage: COURSES:3
     Route: 040
     Dates: start: 20130108
  2. IPILIMUMAB [Suspect]
     Indication: MALIGNANT MELANOMA
     Dosage: COURSES:3
     Route: 040
     Dates: start: 20130108
  3. ALAVERT [Concomitant]
     Dates: start: 2010

REACTIONS (2)
  - Lipase increased [Not Recovered/Not Resolved]
  - Amylase increased [Not Recovered/Not Resolved]
